FAERS Safety Report 8617341-4 (Version None)
Quarter: 2012Q3

REPORT INFORMATION
  Report Type: 
  Country: None (occurrence: None)
  Receive Date: 20120823
  Receipt Date: 20120810
  Transmission Date: 20120928
  Serious: No
  Sender: FDA-Public Use
  Company Number: US-ASTRAZENECA-2012SE20375

PATIENT
  Age: 21 Year
  Sex: Male
  Weight: 63.5 kg

DRUGS (10)
  1. SEROQUEL [Suspect]
     Route: 048
  2. SEROQUEL [Suspect]
     Route: 048
  3. SEROQUEL [Suspect]
     Indication: ANXIETY
     Route: 048
     Dates: start: 20120301, end: 20120101
  4. RISPERDAL [Suspect]
     Route: 065
  5. MIRALAX [Concomitant]
  6. SEROQUEL [Suspect]
     Route: 048
     Dates: start: 20120401, end: 20120620
  7. SEROQUEL [Suspect]
     Route: 048
  8. SEROQUEL [Suspect]
     Route: 048
  9. SEROQUEL [Suspect]
     Indication: AFFECTIVE DISORDER
     Route: 048
     Dates: start: 20120301, end: 20120101
  10. SEROQUEL [Suspect]
     Route: 048
     Dates: start: 20120401, end: 20120620

REACTIONS (6)
  - ABNORMAL BEHAVIOUR [None]
  - DRUG INTOLERANCE [None]
  - OFF LABEL USE [None]
  - IRRITABILITY [None]
  - DRUG INEFFECTIVE [None]
  - ANXIETY [None]
